FAERS Safety Report 4281363-7 (Version None)
Quarter: 2004Q1

REPORT INFORMATION
  Report Type: 
  Country: None (occurrence: None)
  Receive Date: 20040129
  Receipt Date: 20040122
  Transmission Date: 20041129
  Serious: Yes (Death)
  Sender: FDA-Public Use
  Company Number: DE-ROCHE-357109

PATIENT
  Age: 56 Year
  Sex: Female

DRUGS (2)
  1. PEGASYS [Suspect]
     Route: 065
     Dates: end: 20031115
  2. RIBAVIRIN [Suspect]
     Route: 065
     Dates: end: 20031115

REACTIONS (2)
  - ANAEMIA [None]
  - COAGULOPATHY [None]
